FAERS Safety Report 21283359 (Version 1)
Quarter: 2022Q3

REPORT INFORMATION
  Report Type: Spontaneous
  Country: IL (occurrence: IL)
  Receive Date: 20220901
  Receipt Date: 20220901
  Transmission Date: 20221026
  Serious: Yes (Hospitalization, Other)
  Sender: FDA-Public Use
  Company Number: IL-JUBILANT CADISTA PHARMACEUTICALS-2022JUB00233

PATIENT
  Age: 37 Year
  Sex: Male

DRUGS (2)
  1. PREDNISONE [Suspect]
     Active Substance: PREDNISONE
     Indication: Gouty arthritis
     Dosage: 40 MG, 1X/DAY
     Route: 065
  2. UNSPECIFIED CONVENTIONAL TREATMENT FOR GOUTY ARTHRITIS [Concomitant]
     Indication: Gouty arthritis
     Route: 065

REACTIONS (13)
  - Cardiac failure [Recovering/Resolving]
  - Congestive cardiomyopathy [Recovering/Resolving]
  - Atrial fibrillation [Recovering/Resolving]
  - Steatohepatitis [Unknown]
  - Osteoporosis [Unknown]
  - Cushingoid [Unknown]
  - Skin striae [Unknown]
  - Diabetes mellitus [Recovered/Resolved]
  - Hypertension [Unknown]
  - Cataract [Unknown]
  - Pneumocystis jirovecii pneumonia [Unknown]
  - Oral candidiasis [Unknown]
  - Muscular weakness [Unknown]
